FAERS Safety Report 4366779-2 (Version None)
Quarter: 2004Q2

REPORT INFORMATION
  Report Type: 
  Country: None (occurrence: None)
  Receive Date: 20040524
  Receipt Date: 20040510
  Transmission Date: 20050107
  Serious: Yes (Hospitalization, Other)
  Sender: FDA-Public Use
  Company Number: 2004027465

PATIENT
  Age: 73 Year
  Sex: Female

DRUGS (8)
  1. SULPERAZON (CEFOPERAZONE, SULBACTAM) [Suspect]
     Indication: CELLULITIS
     Dosage: INTRAVENOUS
     Route: 042
     Dates: start: 20040329, end: 20040404
  2. VALPROATE SODIUM [Concomitant]
  3. MARZULENE S (SODIUM GUALENATE) [Concomitant]
  4. FUROSEMIDE [Concomitant]
  5. GLYBURIDE [Concomitant]
  6. CYTARABINE [Concomitant]
  7. MAGNESIUM OXIDE (MAGNESIUM OXIDE) [Concomitant]
  8. SENNOSIDE A+B (SENNOSIDE A+B) [Concomitant]

REACTIONS (1)
  - ERYTHEMA MULTIFORME [None]
